FAERS Safety Report 9607438 (Version 1)
Quarter: 2013Q4

REPORT INFORMATION
  Report Type: Spontaneous
  Country: US (occurrence: None)
  Receive Date: 20131007
  Receipt Date: 20131007
  Transmission Date: 20140711
  Serious: Yes (Other)
  Sender: FDA-Public Use
  Company Number: None

PATIENT
  Age: 49 Year
  Sex: Female

DRUGS (2)
  1. BUPROPION [Suspect]
     Indication: DEPRESSION
     Route: 048
  2. BUPROPION [Suspect]
     Indication: DEPRESSION
     Route: 048

REACTIONS (5)
  - Disorientation [None]
  - Depression [None]
  - Headache [None]
  - Drug ineffective [None]
  - Abdominal pain upper [None]
